FAERS Safety Report 4379880-4 (Version None)
Quarter: 2004Q2

REPORT INFORMATION
  Report Type: 
  Country: None (occurrence: None)
  Receive Date: 20040614
  Receipt Date: 20040602
  Transmission Date: 20050107
  Serious: Yes (Other)
  Sender: FDA-Public Use
  Company Number: AU-JNJFOC-20040600671

PATIENT
  Age: 87 Year
  Sex: Female

DRUGS (3)
  1. REMINYL [Suspect]
     Indication: DRUG USE FOR UNKNOWN INDICATION
     Dosage: 4 MG, 2 IN 1 DAY, ORAL
     Route: 048
  2. LOSEC (UNSPECIFIED) OMEPRAZOLE [Concomitant]
  3. LIPITOR (UNSPECIFIED) ATORVASTATIN [Concomitant]

REACTIONS (1)
  - HEPATITIS CHOLESTATIC [None]
